FAERS Safety Report 9905584 (Version 2)
Quarter: 2014Q1

REPORT INFORMATION
  Report Type: Spontaneous
  Country: GB (occurrence: GB)
  Receive Date: 20140218
  Receipt Date: 20140226
  Transmission Date: 20141002
  Serious: Yes (Life-Threatening, Hospitalization)
  Sender: FDA-Public Use
  Company Number: GB-GLAXOSMITHKLINE-B0969082A

PATIENT
  Age: 17 Year
  Sex: Female

DRUGS (1)
  1. ZANTAC [Suspect]
     Indication: PRODUCT USED FOR UNKNOWN INDICATION
     Dosage: 150MG SINGLE DOSE
     Route: 065
     Dates: start: 2013

REACTIONS (7)
  - Stevens-Johnson syndrome [Unknown]
  - Hypersensitivity [Unknown]
  - Blister [Unknown]
  - Skin exfoliation [Unknown]
  - Alopecia [Unknown]
  - Onychomadesis [Unknown]
  - Weight decreased [Unknown]
